FAERS Safety Report 10725182 (Version 1)
Quarter: 2015Q1

REPORT INFORMATION
  Report Type: Spontaneous
  Country: FR (occurrence: FR)
  Receive Date: 20150120
  Receipt Date: 20150120
  Transmission Date: 20150721
  Serious: Yes (Other)
  Sender: FDA-Public Use
  Company Number: FR-GLAXOSMITHKLINE-FR2015GSK004485

PATIENT
  Age: 79 Year
  Sex: Male

DRUGS (11)
  1. LOPERAMIDE [Concomitant]
     Active Substance: LOPERAMIDE
     Dosage: UNK
  2. ALPRAZOLAM. [Concomitant]
     Active Substance: ALPRAZOLAM
     Dosage: 0.25 MG, UNK
  3. DOLIPRANE [Concomitant]
     Active Substance: ACETAMINOPHEN
  4. AUGMENTIN [Concomitant]
     Active Substance: AMOXICILLIN\CLAVULANATE POTASSIUM
     Indication: BRONCHITIS
     Dosage: UNK
     Dates: start: 20141129, end: 20141202
  5. COUMADINE [Concomitant]
     Active Substance: WARFARIN SODIUM
  6. ZELITREX [Suspect]
     Active Substance: VALACYCLOVIR HYDROCHLORIDE
     Indication: HERPES ZOSTER
     Dosage: 1 G, 1D
     Route: 048
     Dates: start: 20141202, end: 20141204
  7. AMLOR [Concomitant]
     Active Substance: AMLODIPINE BESYLATE
     Dosage: 10 MG, 1D
  8. AZANTAC [Concomitant]
     Active Substance: RANITIDINE HYDROCHLORIDE
     Dosage: 150 MG, 1D
  9. VENOFER [Concomitant]
     Active Substance: IRON SUCROSE
  10. FUMAFER [Concomitant]
     Active Substance: FERROUS FUMARATE
  11. PYOSTACINE [Suspect]
     Active Substance: PRISTINAMYCIN
     Indication: BRONCHITIS
     Dosage: UNK
     Route: 048
     Dates: start: 20121202, end: 20121208

REACTIONS (2)
  - Dyskinesia [Recovered/Resolved]
  - Confusional state [Recovered/Resolved]

NARRATIVE: CASE EVENT DATE: 20141204
